FAERS Safety Report 7218363-0 (Version None)
Quarter: 2011Q1

REPORT INFORMATION
  Report Type: 
  Country: None (occurrence: None)
  Receive Date: 20110110
  Receipt Date: 20110106
  Transmission Date: 20110831
  Serious: Yes (Death, Other)
  Sender: FDA-Public Use
  Company Number: PHHY2010US74228

PATIENT
  Sex: Male

DRUGS (11)
  1. TEGRETOL [Concomitant]
  2. VALCYTE [Concomitant]
  3. NIFEDIPINE [Concomitant]
  4. RAPAMUNE [Suspect]
     Dosage: 1 MG 2X1DAY
     Dates: start: 20080101
  5. GABAPENTIN [Concomitant]
  6. SANDIMMUNE [Suspect]
     Indication: RENAL TRANSPLANT
     Dosage: UNK
     Dates: start: 19860101, end: 19890101
  7. LABETALOL [Concomitant]
  8. NEORAL [Suspect]
     Indication: RENAL TRANSPLANT
     Dosage: UNK
     Dates: start: 19890101, end: 20080101
  9. RAPAMUNE [Suspect]
     Dosage: 1 MG 4X1DAY
     Dates: start: 20080101
  10. RISPERDONE [Concomitant]
  11. PREDNISONE [Concomitant]

REACTIONS (2)
  - LYMPHADENOPATHY [None]
  - DEATH [None]
